FAERS Safety Report 16896830 (Version 1)
Quarter: 2019Q4

REPORT INFORMATION
  Report Type: Spontaneous
  Country: US (occurrence: US)
  Receive Date: 20191008
  Receipt Date: 20191008
  Transmission Date: 20200122
  Serious: Yes (Other)
  Sender: FDA-Public Use
  Company Number: US-BAXTER-2019BAX019424

PATIENT
  Age: 14 Month
  Sex: Female
  Weight: 8 kg

DRUGS (4)
  1. CEFTAZIDIME. [Concomitant]
     Active Substance: CEFTAZIDIME
     Indication: ANTIBIOTIC THERAPY
     Route: 042
  2. CEFTAZIDIME. [Concomitant]
     Active Substance: CEFTAZIDIME
     Indication: EVIDENCE BASED TREATMENT
  3. VANCOMYCIN INJECTION, USP [Suspect]
     Active Substance: VANCOMYCIN
     Indication: EVIDENCE BASED TREATMENT
     Route: 042
  4. VANCOMYCIN INJECTION, USP [Suspect]
     Active Substance: VANCOMYCIN
     Indication: ANTIBIOTIC THERAPY

REACTIONS (4)
  - Ototoxicity [Recovered/Resolved]
  - Product administration error [Unknown]
  - Overdose [Recovered/Resolved]
  - Renal failure [Unknown]
